FAERS Safety Report 19172679 (Version 1)
Quarter: 2021Q2

REPORT INFORMATION
  Report Type: Spontaneous
  Country: US (occurrence: US)
  Receive Date: 20210422
  Receipt Date: 20210422
  Transmission Date: 20210717
  Serious: Yes (Death)
  Sender: FDA-Public Use
  Company Number: None

PATIENT
  Age: 71 Year
  Sex: Male
  Weight: 83 kg

DRUGS (5)
  1. FAMOTIDINE 20 MG IV ONCE [Concomitant]
     Dates: start: 20210419, end: 20210419
  2. DEXAMETHASONE 20 MG IV ONCE [Concomitant]
     Dates: start: 20210419, end: 20210419
  3. CETUXIMAB. [Suspect]
     Active Substance: CETUXIMAB
     Indication: SQUAMOUS CELL CARCINOMA
     Dosage: ?          OTHER FREQUENCY:ONCE;?
     Route: 041
     Dates: start: 20210419, end: 20210419
  4. DIPHENHYDRAMINE 50 MG IVPB ONCE [Concomitant]
     Dates: start: 20210419, end: 20210419
  5. PALONOSETRON 250 MCG IV ONCE [Concomitant]
     Dates: start: 20210419, end: 20210419

REACTIONS (5)
  - Pulse absent [None]
  - Cerebrovascular accident [None]
  - Cardio-respiratory arrest [None]
  - Dyspnoea [None]
  - Systemic inflammatory response syndrome [None]

NARRATIVE: CASE EVENT DATE: 20210419
